FAERS Safety Report 6993853-4 (Version None)
Quarter: 2010Q3

REPORT INFORMATION
  Report Type: 
  Country: None (occurrence: None)
  Receive Date: 20100917
  Receipt Date: 20100412
  Transmission Date: 20110219
  Serious: Yes (Other)
  Sender: FDA-Public Use
  Company Number: US-ASTRAZENECA-2009UW17226

PATIENT
  Age: 13439 Day
  Sex: Female

DRUGS (10)
  1. SEROQUEL [Suspect]
     Route: 048
     Dates: start: 20010626
  2. HYDROXYZINE PAM [Concomitant]
     Dates: start: 20010702
  3. TRAZODONE HCL [Concomitant]
     Dates: start: 20000926
  4. RISPERDAL [Concomitant]
     Dates: start: 20010702
  5. PAXIL [Concomitant]
     Dates: start: 20010404
  6. ZYPREXA [Concomitant]
     Dosage: 2.5 MG TO 10 MG
     Dates: start: 20000926
  7. FLUOXETINE [Concomitant]
     Dates: start: 20000926
  8. DIPHENHYDRAMINE HCL [Concomitant]
     Dates: start: 19980202
  9. MOBAN [Concomitant]
     Dates: start: 19980506
  10. ZOLOFT [Concomitant]
     Dates: start: 19980202

REACTIONS (3)
  - DIABETES MELLITUS [None]
  - KETOACIDOSIS [None]
  - PANCREATITIS [None]
